FAERS Safety Report 7444378-3 (Version None)
Quarter: 2011Q2

REPORT INFORMATION
  Report Type: 
  Country: None (occurrence: None)
  Receive Date: 20110427
  Receipt Date: 20110427
  Transmission Date: 20111010
  Serious: Yes (Hospitalization, Disabling)
  Sender: FDA-Public Use
  Company Number: None

PATIENT
  Age: 82 Year
  Sex: Female

DRUGS (3)
  1. LACTULOSE [Concomitant]
  2. COLACE [Suspect]
     Dosage: PO
     Route: 048
  3. MIRALAX [Suspect]
     Dosage: PO
     Route: 048

REACTIONS (3)
  - DRUG ABUSE [None]
  - METABOLIC ACIDOSIS [None]
  - HYPOKALAEMIA [None]
